FAERS Safety Report 13588311 (Version 1)
Quarter: 2017Q2

REPORT INFORMATION
  Report Type: Spontaneous
  Country: US (occurrence: US)
  Receive Date: 20170528
  Receipt Date: 20170528
  Transmission Date: 20170830
  Serious: No
  Sender: FDA-Public Use
  Company Number: US-BAXTER-2017BAX021823

PATIENT
  Age: 53 Year
  Sex: Female
  Weight: 89.36 kg

DRUGS (13)
  1. 0.9% SODIUM CHLORIDE INJECTION [Suspect]
     Active Substance: SODIUM CHLORIDE
     Indication: MEDICATION DILUTION
     Dosage: TWO TIMES RECEIVED ON 18APR2017
     Route: 042
     Dates: start: 20170418, end: 20170418
  2. ZYVOX [Suspect]
     Active Substance: LINEZOLID
     Indication: PRODUCT USED FOR UNKNOWN INDICATION
     Route: 065
  3. TRIAMCINOLONE ACETONIDE. [Suspect]
     Active Substance: TRIAMCINOLONE ACETONIDE
     Indication: CELLULITIS
  4. KEFLEX [Concomitant]
     Active Substance: CEPHALEXIN
     Indication: INFECTION
     Dosage: COMPLETED PRIOR TO BEING ADMITTED TO HOSPITAL, IT DID NOT HELP HER INFECTION
     Route: 065
     Dates: start: 201704, end: 201704
  5. VANCOMYCIN INJECTION, USP [Suspect]
     Active Substance: VANCOMYCIN
     Indication: ANTIBIOTIC THERAPY
     Dosage: TWO TIMES RECEIVED ON 18APR2017
     Route: 042
     Dates: start: 20170418, end: 20170418
  6. CLINDAMYCIN IN 0.9% SODIUM CHLORIDE INJECTION [Suspect]
     Active Substance: CLINDAMYCIN HYDROCHLORIDE
     Indication: CELLULITIS
     Dosage: INJECTION TO RIGHT HIP, AT AROUND 20:00
     Route: 065
     Dates: start: 20170414
  7. ZOSYN [Suspect]
     Active Substance: PIPERACILLIN SODIUM\TAZOBACTAM SODIUM
     Indication: ANTIBIOTIC THERAPY
     Dosage: TWO TIMES RECEIVED ON 18APR2017
     Route: 042
     Dates: start: 20170418, end: 20170418
  8. ZYVOX [Suspect]
     Active Substance: LINEZOLID
     Dosage: 600MG PER 300ML
     Route: 065
     Dates: start: 20170419
  9. BENADRYL [Concomitant]
     Active Substance: DIPHENHYDRAMINE HYDROCHLORIDE
     Indication: PRURITUS
     Dosage: LAST 3 WEEKS, PRIOR TO BEING ADMITTED TO HOSPITAL
     Route: 065
  10. BACTRIM [Concomitant]
     Active Substance: SULFAMETHOXAZOLE\TRIMETHOPRIM
     Indication: INFECTION
     Dosage: SEVEN DAYS, COMPLETED PRIOR TO BEING HOSPITALIZATION
     Route: 048
     Dates: start: 201704, end: 201704
  11. MEDROL [Concomitant]
     Active Substance: METHYLPREDNISOLONE
     Indication: PRODUCT USED FOR UNKNOWN INDICATION
     Dosage: DOSE PACK, TOOK THE MEDROL WITHOUT ANY TROUBLE
     Route: 065
     Dates: start: 201704
  12. CLINDAMYCIN IN 0.9% SODIUM CHLORIDE INJECTION [Suspect]
     Active Substance: CLINDAMYCIN HYDROCHLORIDE
     Route: 042
     Dates: start: 20170419, end: 20170419
  13. TRIAMCINOLONE ACETONIDE. [Suspect]
     Active Substance: TRIAMCINOLONE ACETONIDE
     Indication: PRURITUS
     Route: 061
     Dates: start: 20170414

REACTIONS (5)
  - Infusion related reaction [None]
  - Burning sensation [Recovered/Resolved]
  - Injection site pain [Recovered/Resolved]
  - Urticaria [Recovered/Resolved]
  - Pruritus [Recovered/Resolved]

NARRATIVE: CASE EVENT DATE: 20170414
